FAERS Safety Report 8550464-7 (Version None)
Quarter: 2012Q3

REPORT INFORMATION
  Report Type: 
  Country: None (occurrence: None)
  Receive Date: 20120730
  Receipt Date: 20120716
  Transmission Date: 20120928
  Serious: Yes (Hospitalization)
  Sender: FDA-Public Use
  Company Number: US-ELI_LILLY_AND_COMPANY-US201207005057

PATIENT
  Age: 40 Year
  Sex: Male

DRUGS (3)
  1. ZYPREXA [Suspect]
     Indication: ANXIETY
     Dosage: 1 DF, UNKNOWN
  2. CYMBALTA [Suspect]
     Indication: ANXIETY
     Dosage: 120 MG, QD
  3. ZYPREXA [Suspect]
     Dosage: 10 MG, BID

REACTIONS (2)
  - OFF LABEL USE [None]
  - HOSPITALISATION [None]
